FAERS Safety Report 4816731-5 (Version None)
Quarter: 2005Q4

REPORT INFORMATION
  Report Type: 
  Country: None (occurrence: None)
  Receive Date: 20051031
  Receipt Date: 20051031
  Transmission Date: 20060501
  Serious: Yes (Life-Threatening, Hospitalization, Disabling)
  Sender: FDA-Public Use
  Company Number: None

PATIENT
  Age: 7 Year
  Sex: Male
  Weight: 35 kg

DRUGS (1)
  1. MIRALAX [Suspect]
     Indication: CONSTIPATION
     Dosage: 1-2 TABLESPOONS  THREE TIMES DAILY PO
     Route: 048
     Dates: start: 20050512, end: 20050515

REACTIONS (9)
  - CONVULSION [None]
  - DEHYDRATION [None]
  - DEVELOPMENTAL COORDINATION DISORDER [None]
  - ENCOPRESIS [None]
  - HYPONATRAEMIA [None]
  - LETHARGY [None]
  - MENTAL STATUS CHANGES [None]
  - SPEECH DISORDER DEVELOPMENTAL [None]
  - THERAPY NON-RESPONDER [None]
